FAERS Safety Report 8211017-3 (Version None)
Quarter: 2012Q1

REPORT INFORMATION
  Report Type: 
  Country: None (occurrence: None)
  Receive Date: 20120315
  Receipt Date: 20120307
  Transmission Date: 20120608
  Serious: Yes (Other)
  Sender: FDA-Public Use
  Company Number: PHHY2012CH020232

PATIENT
  Sex: Male

DRUGS (1)
  1. AREDIA [Suspect]
     Dosage: UNK UKN, UNK
     Dates: start: 20090101

REACTIONS (2)
  - INJECTION SITE INFLAMMATION [None]
  - EYE INFLAMMATION [None]
